FAERS Safety Report 6983575-8 (Version None)
Quarter: 2010Q3

REPORT INFORMATION
  Report Type: 
  Country: None (occurrence: None)
  Receive Date: 20100914
  Receipt Date: 20081007
  Transmission Date: 20110219
  Serious: Yes (Other)
  Sender: FDA-Public Use
  Company Number: US-WYE-H06285908

PATIENT
  Age: 43 Year
  Sex: Female
  Weight: 68 kg

DRUGS (5)
  1. TYGACIL [Suspect]
     Indication: MULTIPLE-DRUG RESISTANCE
     Route: 042
     Dates: start: 20081004
  2. TYGACIL [Suspect]
     Indication: BREAST ABSCESS
  3. TYGACIL [Suspect]
     Indication: ESCHERICHIA BACTERAEMIA
  4. TYGACIL [Suspect]
     Indication: KLEBSIELLA BACTERAEMIA
  5. HEPARIN [Suspect]
     Dosage: UNKNOWN

REACTIONS (2)
  - HEPARIN-INDUCED THROMBOCYTOPENIA [None]
  - THROMBOCYTOPENIA [None]
